FAERS Safety Report 8406161-1 (Version None)
Quarter: 2012Q2

REPORT INFORMATION
  Report Type: 
  Country: None (occurrence: None)
  Receive Date: 20120329
  Receipt Date: 20081121
  Transmission Date: 20120825
  Serious: Yes (Life-Threatening, Hospitalization)
  Sender: FDA-Public Use
  Company Number: 004568

PATIENT
  Age: 81 Year
  Sex: Male
  Weight: 46 kg

DRUGS (4)
  1. ADALAT [Suspect]
  2. ENALAPRIL MALEATE [Concomitant]
  3. PLETAL [Suspect]
     Indication: CEREBRAL INFARCTION
     Dosage: 100 MG, BID, ORAL
     Route: 048
     Dates: start: 20080805, end: 20080905
  4. FAMOTIDINE [Concomitant]

REACTIONS (5)
  - CARDIAC FAILURE [None]
  - OEDEMA PERIPHERAL [None]
  - ATRIAL FIBRILLATION [None]
  - TACHYCARDIA [None]
  - ATRIOVENTRICULAR BLOCK SECOND DEGREE [None]
